FAERS Safety Report 9752084 (Version 2)
Quarter: 2014Q1

REPORT INFORMATION
  Report Type: Report from Study
  Country: DE (occurrence: DE)
  Receive Date: 20131213
  Receipt Date: 20140224
  Transmission Date: 20141002
  Serious: Yes (Hospitalization)
  Sender: FDA-Public Use
  Company Number: PHHO2013DE016209

PATIENT
  Sex: 0

DRUGS (3)
  1. FTY [Suspect]
     Indication: RELAPSING-REMITTING MULTIPLE SCLEROSIS
     Dosage: 0.5 MG, UNK
     Route: 048
     Dates: start: 20131209, end: 20131211
  2. AMINEURIN [Concomitant]
     Dosage: 10 MG, QD
     Dates: start: 201310
  3. CITALOPRAM [Concomitant]
     Dosage: 20 MG, QD
     Dates: start: 201309

REACTIONS (1)
  - Chest pain [Not Recovered/Not Resolved]
